FAERS Safety Report 20241904 (Version 1)
Quarter: 2021Q4

REPORT INFORMATION
  Report Type: Spontaneous
  Country: CA (occurrence: CA)
  Receive Date: 20211228
  Receipt Date: 20211228
  Transmission Date: 20220303
  Serious: Yes (Other)
  Sender: FDA-Public Use
  Company Number: CA-PFIZER INC-202101828469

PATIENT
  Age: 22 Year
  Sex: Female
  Weight: 74 kg

DRUGS (1)
  1. SULFASALAZINE [Suspect]
     Active Substance: SULFASALAZINE
     Dosage: 1 DF UNK DOSE, FREQ, START AND STOP DATE
     Route: 065

REACTIONS (5)
  - Crohn^s disease [Unknown]
  - Malnutrition [Not Recovered/Not Resolved]
  - Migraine with aura [Not Recovered/Not Resolved]
  - Condition aggravated [Unknown]
  - Impaired quality of life [Unknown]
